FAERS Safety Report 8203743-7 (Version None)
Quarter: 2012Q1

REPORT INFORMATION
  Report Type: 
  Country: None (occurrence: None)
  Receive Date: 20120313
  Receipt Date: 20120306
  Transmission Date: 20120608
  Serious: Yes (Other)
  Sender: FDA-Public Use
  Company Number: US-BAYER-2010-000606

PATIENT
  Sex: Female

DRUGS (4)
  1. YASMIN [Suspect]
     Indication: PRODUCT USED FOR UNKNOWN INDICATION
     Dosage: UNK
  2. HYDROCODONE W/ACETYLSALICYLIC ACID [Concomitant]
     Dosage: UNK
     Dates: start: 20090714
  3. PREDNISONE [Concomitant]
     Dosage: 20 MG, UNK
     Dates: start: 20090723
  4. YAZ [Suspect]
     Indication: CONTRACEPTION
     Dosage: UNK
     Dates: start: 20071101, end: 20090801

REACTIONS (2)
  - PULMONARY EMBOLISM [None]
  - INJURY [None]
